FAERS Safety Report 4300275-3 (Version None)
Quarter: 2004Q1

REPORT INFORMATION
  Report Type: 
  Country: None (occurrence: None)
  Receive Date: 20040218
  Receipt Date: 20040209
  Transmission Date: 20041129
  Serious: Yes (Life-Threatening, Hospitalization)
  Sender: FDA-Public Use
  Company Number: EWC040237903

PATIENT
  Age: 79 Year
  Sex: Female

DRUGS (2)
  1. GEMCITABINE HYDROCHLORIDE-IV (GEMCITABINE) [Suspect]
     Indication: GALLBLADDER CANCER
     Dosage: 1000 MG/M2/3 OTHER
     Route: 050
     Dates: start: 20030501
  2. GRANISETRON [Concomitant]

REACTIONS (18)
  - AORTIC VALVE INCOMPETENCE [None]
  - BLOOD LACTATE DEHYDROGENASE INCREASED [None]
  - BRAIN SCAN ABNORMAL [None]
  - CHILLS [None]
  - DYSARTHRIA [None]
  - DYSPNOEA [None]
  - HAEMOGLOBIN DECREASED [None]
  - HYPERTENSION [None]
  - HYPOXIA [None]
  - LACUNAR INFARCTION [None]
  - LEFT VENTRICULAR FAILURE [None]
  - MITRAL VALVE INCOMPETENCE [None]
  - PALLOR [None]
  - PLATELET COUNT INCREASED [None]
  - PULMONARY OEDEMA [None]
  - RALES [None]
  - RED BLOOD CELL SEDIMENTATION RATE INCREASED [None]
  - TRANSIENT ISCHAEMIC ATTACK [None]
